FAERS Safety Report 11949578 (Version 2)
Quarter: 2016Q1

REPORT INFORMATION
  Report Type: Spontaneous
  Country: US (occurrence: US)
  Receive Date: 20160125
  Receipt Date: 20160319
  Transmission Date: 20160526
  Serious: No
  Sender: FDA-Public Use
  Company Number: US-009507513-1601USA003493

PATIENT
  Sex: Female
  Weight: 155.1 kg

DRUGS (1)
  1. NEXPLANON [Suspect]
     Active Substance: ETONOGESTREL
     Indication: CONTRACEPTION
     Dosage: 68 MG, ONE ROD PER 3 YEARS
     Route: 059
     Dates: start: 20140702

REACTIONS (2)
  - Device breakage [Recovered/Resolved]
  - Implant site pain [Recovered/Resolved]
